FAERS Safety Report 13127298 (Version 1)
Quarter: 2017Q1

REPORT INFORMATION
  Report Type: Spontaneous
  Country: US (occurrence: US)
  Receive Date: 20170118
  Receipt Date: 20170118
  Transmission Date: 20170428
  Serious: Yes (Hospitalization, Other)
  Sender: FDA-Public Use
  Company Number: US-ROCHE-1739782

PATIENT
  Age: 60 Year
  Sex: Female

DRUGS (2)
  1. RITUXAN [Suspect]
     Active Substance: RITUXIMAB
     Indication: DERMATOMYOSITIS
     Dosage: DATE OF LAST INFUSION: 06/JAN/2016.
     Route: 042
  2. CELLCEPT [Suspect]
     Active Substance: MYCOPHENOLATE MOFETIL\MYCOPHENOLATE MOFETIL HYDROCHLORIDE
     Indication: DERMATOMYOSITIS
     Route: 065
     Dates: end: 2015

REACTIONS (11)
  - Photophobia [Unknown]
  - Vein disorder [Not Recovered/Not Resolved]
  - Fatigue [Not Recovered/Not Resolved]
  - Cardiac failure [Unknown]
  - Angina pectoris [Recovered/Resolved with Sequelae]
  - Gastrooesophageal reflux disease [Recovering/Resolving]
  - Decreased appetite [Unknown]
  - White blood cell count decreased [Not Recovered/Not Resolved]
  - Weight increased [Unknown]
  - Hallucination [Unknown]
  - Anaemia [Unknown]

NARRATIVE: CASE EVENT DATE: 201505
